FAERS Safety Report 21564701 (Version 1)
Quarter: 2022Q4

REPORT INFORMATION
  Report Type: Spontaneous
  Country: IT (occurrence: IT)
  Receive Date: 20221108
  Receipt Date: 20221108
  Transmission Date: 20230113
  Serious: Yes (Other)
  Sender: FDA-Public Use
  Company Number: IT-MINISAL02-890310

PATIENT
  Age: 53 Year
  Sex: Female
  Weight: 55 kg

DRUGS (4)
  1. OXALIPLATIN [Suspect]
     Active Substance: OXALIPLATIN
     Indication: Colon cancer
     Dosage: UNK
     Route: 042
     Dates: start: 202110
  2. LEVOLEUCOVORIN CALCIUM [Concomitant]
     Active Substance: LEVOLEUCOVORIN CALCIUM
     Indication: Therapeutic product effect increased
     Dosage: 157 MILLIGRAM
     Route: 042
     Dates: start: 202110
  3. FLUOROURACIL [Suspect]
     Active Substance: FLUOROURACIL
     Indication: Colon cancer
     Dosage: 500 MILLIGRAM
     Route: 042
     Dates: start: 202110
  4. ONDANSETRON [Concomitant]
     Active Substance: ONDANSETRON
     Indication: Nausea
     Dosage: 8 MILLIGRAM
     Route: 042
     Dates: start: 202110

REACTIONS (12)
  - Dysentery [Recovering/Resolving]
  - Gastrooesophageal reflux disease [Recovering/Resolving]
  - Constipation [Recovering/Resolving]
  - Weight increased [Recovering/Resolving]
  - Fungal foot infection [Recovering/Resolving]
  - Asthenia [Recovering/Resolving]
  - Alopecia [Recovering/Resolving]
  - Nausea [Recovering/Resolving]
  - Feeling cold [Recovering/Resolving]
  - Paronychia [Recovering/Resolving]
  - Paraesthesia [Recovering/Resolving]
  - Dysgeusia [Recovering/Resolving]

NARRATIVE: CASE EVENT DATE: 20211001
